FAERS Safety Report 8444613-9 (Version None)
Quarter: 2012Q2

REPORT INFORMATION
  Report Type: 
  Country: None (occurrence: None)
  Receive Date: 20120618
  Receipt Date: 20120612
  Transmission Date: 20120825
  Serious: Yes (Hospitalization)
  Sender: FDA-Public Use
  Company Number: US-PFIZER INC-2012141968

PATIENT
  Sex: Female
  Weight: 54 kg

DRUGS (7)
  1. FLAGYL [Suspect]
     Indication: FOOD POISONING
     Dosage: UNK
     Route: 042
     Dates: start: 20120401, end: 20120401
  2. CIPROFLOXACIN HYDROCHLORIDE [Suspect]
     Indication: FOOD POISONING
     Dosage: UNK
     Dates: start: 20120401, end: 20120401
  3. FLAGYL [Suspect]
     Indication: VOMITING
  4. LIPITOR [Concomitant]
     Indication: BLOOD CHOLESTEROL INCREASED
     Dosage: 10 MG, UNK
  5. FLAGYL [Suspect]
     Indication: BACTERIAL INFECTION
  6. FLAGYL [Suspect]
     Indication: LOSS OF CONSCIOUSNESS
  7. FLAGYL [Suspect]
     Indication: COLITIS
     Dosage: UNK, 3X/DAY
     Route: 048
     Dates: start: 20120508, end: 20120501

REACTIONS (6)
  - COLITIS [None]
  - VOMITING [None]
  - VISUAL IMPAIRMENT [None]
  - ILL-DEFINED DISORDER [None]
  - BACTERIAL INFECTION [None]
  - LOSS OF CONSCIOUSNESS [None]
